FAERS Safety Report 5047447-0 (Version None)
Quarter: 2006Q3

REPORT INFORMATION
  Report Type: 
  Country: None (occurrence: None)
  Receive Date: 20060703
  Receipt Date: 20060620
  Transmission Date: 20061208
  Serious: Yes (Other)
  Sender: FDA-Public Use
  Company Number: GXKR2006US03509

PATIENT
  Age: 17 Year
  Sex: Male

DRUGS (2)
  1. PREDNISONE (NGX)(PREDNISONE) UNKNOWN [Suspect]
     Indication: SYSTEMIC LUPUS ERYTHEMATOSUS
     Dosage: 20 MG, QD, INTRAVENOUS
     Route: 042
  2. CYCLOPHOSPHAMIDE [Suspect]
     Indication: SYSTEMIC LUPUS ERYTHEMATOSUS
     Dosage: 1000 MG, EVERY 6 WEEKS, INTRAVENOUS
     Route: 042

REACTIONS (6)
  - GLOMERULONEPHRITIS PROLIFERATIVE [None]
  - MASS [None]
  - METASTASES TO LYMPH NODES [None]
  - NEPHRECTOMY [None]
  - RENAL CANCER METASTATIC [None]
  - RENAL NECROSIS [None]
